FAERS Safety Report 7314162-X (Version None)
Quarter: 2011Q1

REPORT INFORMATION
  Report Type: 
  Country: None (occurrence: None)
  Receive Date: 20110225
  Receipt Date: 20100520
  Transmission Date: 20110831
  Serious: No
  Sender: FDA-Public Use
  Company Number: US-MYLANLABS-2010S1009181

PATIENT
  Age: 18 Year
  Sex: Male

DRUGS (2)
  1. CLARUS [Suspect]
     Indication: ACNE
     Route: 048
     Dates: start: 20100201, end: 20100401
  2. AMNESTEEM [Suspect]
     Indication: ACNE
     Route: 048
     Dates: start: 20091201, end: 20100101

REACTIONS (4)
  - LIP DRY [None]
  - HAEMATOCHEZIA [None]
  - DRY SKIN [None]
  - DEPRESSED MOOD [None]
